FAERS Safety Report 11128413 (Version 1)
Quarter: 2015Q2

REPORT INFORMATION
  Report Type: Report from Study
  Country: TW (occurrence: TW)
  Receive Date: 20150521
  Receipt Date: 20150521
  Transmission Date: 20150821
  Serious: Yes (Hospitalization)
  Sender: FDA-Public Use
  Company Number: TW-GSKJP-DK201305337002

PATIENT
  Age: 72 Year
  Sex: Male
  Weight: 51 kg

DRUGS (16)
  1. ISOSORBIDE MONONITRATE. [Concomitant]
     Active Substance: ISOSORBIDE MONONITRATE
     Indication: CORONARY ARTERY DISEASE
     Dosage: 40 MG, OD
     Route: 048
     Dates: start: 20130121, end: 20130218
  2. SALICYLAMIDE [Concomitant]
     Active Substance: SALICYLAMIDE
     Indication: TINEA INFECTION
  3. TOPAL [Concomitant]
     Active Substance: ALGINIC ACID\ALUMINUM HYDROXIDE\MAGNESIUM CARBONATE
     Dosage: 200 MG, TID
     Route: 048
     Dates: start: 20130301, end: 20130303
  4. MESNA. [Concomitant]
     Active Substance: MESNA
     Indication: PRODUCTIVE COUGH
     Dosage: 200 MCG/ML, QID
     Route: 055
     Dates: start: 20130121, end: 20130218
  5. THEOPHYLLINE [Concomitant]
     Active Substance: THEOPHYLLINE ANHYDROUS
     Dosage: 400 MG, DAILY
     Dates: start: 20130301, end: 20130303
  6. THEOPHYLLINE [Concomitant]
     Active Substance: THEOPHYLLINE ANHYDROUS
     Indication: CHRONIC OBSTRUCTIVE PULMONARY DISEASE
     Dosage: 400 MG, OD
     Route: 048
     Dates: start: 20130121, end: 20130218
  7. ISOSORBIDE MONONITRATE. [Concomitant]
     Active Substance: ISOSORBIDE MONONITRATE
     Dosage: 40 MG, DAILY
     Dates: start: 20130301, end: 20130303
  8. GLIBENCLAMIDE [Concomitant]
     Active Substance: GLYBURIDE
     Indication: DIABETES MELLITUS
     Dosage: 5 MG, BID
     Route: 048
     Dates: start: 20130121, end: 20130218
  9. EBASTINE [Concomitant]
     Active Substance: EBASTINE
     Indication: NASAL OBSTRUCTION
     Dosage: 10 MG, OD
     Route: 048
     Dates: start: 20130121, end: 20130218
  10. BUSPIRONE [Concomitant]
     Active Substance: BUSPIRONE HYDROCHLORIDE
     Dosage: 10 MG, HS
     Route: 048
     Dates: start: 20130301, end: 20130303
  11. FLUTICASONE FUROATE [Suspect]
     Active Substance: FLUTICASONE FUROATE
     Indication: CHRONIC OBSTRUCTIVE PULMONARY DISEASE
     Dosage: 100 UG, QD
     Route: 055
     Dates: start: 20121024
  12. BUSPIRONE [Concomitant]
     Active Substance: BUSPIRONE HYDROCHLORIDE
     Indication: INSOMNIA
     Dosage: 10 MG, HS
     Route: 048
     Dates: start: 20130121, end: 20130218
  13. TOPAL [Concomitant]
     Active Substance: ALGINIC ACID\ALUMINUM HYDROXIDE\MAGNESIUM CARBONATE
     Indication: GASTROOESOPHAGEAL REFLUX DISEASE
     Dosage: 200 MG, TID
     Route: 048
     Dates: start: 20130121, end: 20130218
  14. GLIBENCLAMIDE [Concomitant]
     Active Substance: GLYBURIDE
     Dosage: 5 MG, BID
     Route: 048
     Dates: start: 20130301, end: 20130303
  15. SALICYLAMIDE [Concomitant]
     Active Substance: SALICYLAMIDE
     Indication: TINEA INFECTION
     Dosage: 2 %, BID
     Route: 061
     Dates: start: 20121009
  16. EBASTINE [Concomitant]
     Active Substance: EBASTINE
     Dosage: 10 MG, DAILY
     Dates: start: 20130301, end: 20130303

REACTIONS (1)
  - Chronic obstructive pulmonary disease [Recovered/Resolved]

NARRATIVE: CASE EVENT DATE: 20130301
